FAERS Safety Report 23753730 (Version 1)
Quarter: 2024Q2

REPORT INFORMATION
  Report Type: Spontaneous
  Country: BR (occurrence: BR)
  Receive Date: 20240417
  Receipt Date: 20240417
  Transmission Date: 20240716
  Serious: Yes (Other)
  Sender: FDA-Public Use
  Company Number: BR-SUN PHARMACEUTICAL INDUSTRIES LTD-2024R1-441662

PATIENT
  Age: 59 Year
  Sex: Male

DRUGS (3)
  1. DOXORUBICIN [Suspect]
     Active Substance: DOXORUBICIN
     Indication: Chemotherapy
     Dosage: UNK
     Route: 065
  2. IFOSFAMIDE [Suspect]
     Active Substance: IFOSFAMIDE
     Indication: Chemotherapy
     Dosage: 3 GRAM PER SQUARE METRE
     Route: 065
  3. MESNA [Suspect]
     Active Substance: MESNA
     Indication: Chemotherapy
     Dosage: UNK
     Route: 065

REACTIONS (1)
  - Renal tubular acidosis [Recovering/Resolving]
